FAERS Safety Report 8263856-0 (Version None)
Quarter: 2012Q2

REPORT INFORMATION
  Report Type: 
  Country: None (occurrence: None)
  Receive Date: 20120405
  Receipt Date: 20120328
  Transmission Date: 20120825
  Serious: Yes (Hospitalization, Disabling, Other)
  Sender: FDA-Public Use
  Company Number: US-MERCK-1201USA03455

PATIENT
  Age: 59 Year
  Sex: Female

DRUGS (3)
  1. FOSAMAX [Suspect]
     Indication: OSTEOPOROSIS
     Route: 048
     Dates: start: 20030101, end: 20080101
  2. EVISTA [Concomitant]
     Indication: OSTEOPOROSIS
     Route: 065
     Dates: start: 20040101, end: 20100101
  3. FOSAMAX [Suspect]
     Route: 048
     Dates: start: 20030101, end: 20080101

REACTIONS (14)
  - HERPES ZOSTER [None]
  - DEPRESSION [None]
  - FEMUR FRACTURE [None]
  - ARTHRITIS [None]
  - ANXIETY [None]
  - SCOLIOSIS [None]
  - FRACTURE NONUNION [None]
  - UTERINE DISORDER [None]
  - PULMONARY EMBOLISM [None]
  - HYPERTENSION [None]
  - LOW TURNOVER OSTEOPATHY [None]
  - BLOOD CHOLESTEROL INCREASED [None]
  - LIGAMENT INJURY [None]
  - IMPAIRED HEALING [None]
